FAERS Safety Report 12885784 (Version 1)
Quarter: 2016Q4

REPORT INFORMATION
  Report Type: Spontaneous
  Country: US (occurrence: US)
  Receive Date: 20161026
  Receipt Date: 20161026
  Transmission Date: 20170207
  Serious: Yes (Hospitalization)
  Sender: FDA-Public Use
  Company Number: US-DUSA PHARMACEUTICALS, INC.-1058855

PATIENT
  Age: 74 Year
  Sex: Female

DRUGS (1)
  1. LEVULAN KERASTICK [Suspect]
     Active Substance: AMINOLEVULINIC ACID HYDROCHLORIDE
     Indication: ACTINIC KERATOSIS
     Route: 061
     Dates: start: 20161010, end: 20161010

REACTIONS (1)
  - Embolic stroke [Recovered/Resolved]

NARRATIVE: CASE EVENT DATE: 20161010
